FAERS Safety Report 19701617 (Version 2)
Quarter: 2021Q3

REPORT INFORMATION
  Report Type: Spontaneous
  Country: US (occurrence: US)
  Receive Date: 20210813
  Receipt Date: 20210930
  Transmission Date: 20211014
  Serious: No
  Sender: FDA-Public Use
  Company Number: US-MYLANLABS-2021M1049551

PATIENT
  Age: 75 Year
  Sex: Female
  Weight: 79 kg

DRUGS (3)
  1. SYNTHROID [Concomitant]
     Active Substance: LEVOTHYROXINE SODIUM
     Dosage: UNK
  2. CLARITIN [Concomitant]
     Active Substance: LORATADINE
     Dosage: UNK
  3. EPINEPHRINE INJECTION USP AUTO?INJECTOR [Suspect]
     Active Substance: EPINEPHRINE
     Indication: ARTHROPOD STING
     Dosage: 0.3 MILLIGRAM, PRN
     Route: 030
     Dates: start: 20210805

REACTIONS (3)
  - Product quality issue [None]
  - Liquid product physical issue [None]
  - Product colour issue [None]

NARRATIVE: CASE EVENT DATE: 20210805
